FAERS Safety Report 14805553 (Version 1)
Quarter: 2018Q2

REPORT INFORMATION
  Report Type: Spontaneous
  Country: US (occurrence: US)
  Receive Date: 20180425
  Receipt Date: 20180425
  Transmission Date: 20180711
  Serious: Yes (Hospitalization)
  Sender: FDA-Public Use
  Company Number: US-JNJFOC-20180428785

PATIENT
  Sex: Male

DRUGS (11)
  1. AMIODARONE [Concomitant]
     Active Substance: AMIODARONE
  2. TOCOPHEROL [Concomitant]
     Active Substance: TOCOPHEROL
  3. COMBIVENT [Concomitant]
     Active Substance: ALBUTEROL SULFATE\IPRATROPIUM BROMIDE
  4. WARFARIN [Concomitant]
     Active Substance: WARFARIN
  5. PRAVASTATIN. [Concomitant]
     Active Substance: PRAVASTATIN
  6. IMBRUVICA [Suspect]
     Active Substance: IBRUTINIB
     Indication: CHRONIC LYMPHOCYTIC LEUKAEMIA
     Route: 048
  7. ADVAIR HFA [Concomitant]
     Active Substance: FLUTICASONE PROPIONATE\SALMETEROL XINAFOATE
  8. CENTRUM SILVER [Concomitant]
     Active Substance: MINERALS\VITAMINS
  9. NORCO [Concomitant]
     Active Substance: ACETAMINOPHEN\HYDROCODONE BITARTRATE
  10. GUAIFENESIN. [Concomitant]
     Active Substance: GUAIFENESIN
  11. ALLOPURINOL. [Concomitant]
     Active Substance: ALLOPURINOL

REACTIONS (1)
  - Hospitalisation [Unknown]
